FAERS Safety Report 9712369 (Version 1)
Quarter: 2013Q4

REPORT INFORMATION
  Report Type: Spontaneous
  Country: US (occurrence: US)
  Receive Date: 20131126
  Receipt Date: 20131126
  Transmission Date: 20140711
  Serious: No
  Sender: FDA-Public Use
  Company Number: US-BRISTOL-MYERS SQUIBB COMPANY-19174911

PATIENT
  Age: 56 Year
  Sex: Female
  Weight: 111.11 kg

DRUGS (2)
  1. BYDUREON [Suspect]
     Indication: TYPE 2 DIABETES MELLITUS
     Dates: start: 20130730
  2. METFORMIN [Concomitant]
     Route: 048

REACTIONS (3)
  - Ocular hyperaemia [Recovering/Resolving]
  - Injection site haemorrhage [Recovered/Resolved]
  - Feeling jittery [Recovered/Resolved]
